FAERS Safety Report 4652128-9 (Version None)
Quarter: 2005Q2

REPORT INFORMATION
  Report Type: 
  Country: None (occurrence: None)
  Receive Date: 20050502
  Receipt Date: 20050502
  Transmission Date: 20051028
  Serious: No
  Sender: FDA-Public Use
  Company Number: None

PATIENT
  Sex: Female
  Weight: 75.9 kg

DRUGS (6)
  1. ALLOPURINOL [Suspect]
     Indication: ACUTE LYMPHOCYTIC LEUKAEMIA
     Dosage: 300 MG PO QD ON DAYS 1-14
     Route: 048
     Dates: start: 20050406
  2. CYCLOPHOSPHAMIDE [Suspect]
     Dosage: SEE IMAGE
     Route: 042
  3. DAUNORUBICIN [Suspect]
     Dosage: 80 MG/M2/DAY X 3 DAYS IV ON DAYS 1, 2, 3.
     Route: 042
  4. VINCRISTINE [Suspect]
     Dosage: SEE IMAGE
     Route: 042
  5. DEXAMETHASONE [Suspect]
     Dosage: SEE IMAGE
     Route: 048
  6. L-ASPARAGINASE [Suspect]
     Dosage: SEE IMAGE
     Route: 058

REACTIONS (14)
  - BLOOD BILIRUBIN INCREASED [None]
  - EJECTION FRACTION DECREASED [None]
  - ELECTROCARDIOGRAM QRS COMPLEX ABNORMAL [None]
  - ELECTROCARDIOGRAM QT PROLONGED [None]
  - ELECTROCARDIOGRAM T WAVE ABNORMAL [None]
  - GENERAL PHYSICAL HEALTH DETERIORATION [None]
  - HYPERTENSION [None]
  - LABORATORY TEST ABNORMAL [None]
  - PLEURAL EFFUSION [None]
  - PULMONARY OEDEMA [None]
  - RENAL FAILURE ACUTE [None]
  - SEPSIS [None]
  - TACHYCARDIA [None]
  - TROPONIN I INCREASED [None]
